FAERS Safety Report 7777679-X (Version None)
Quarter: 2011Q3

REPORT INFORMATION
  Report Type: 
  Country: None (occurrence: None)
  Receive Date: 20110922
  Receipt Date: 20110914
  Transmission Date: 20111222
  Serious: Yes (Disabling, Other)
  Sender: FDA-Public Use
  Company Number: ACO_26647_2011

PATIENT
  Age: 67 Year
  Sex: Male

DRUGS (4)
  1. RITALIN [Concomitant]
  2. AMPYRA [Suspect]
     Indication: GAIT DISTURBANCE
     Dosage: 10 MG, Q 12 HRS
     Dates: start: 20110908, end: 20110909
  3. PROVIGIL [Concomitant]
  4. ASA (ACETYLSALICY ACID) [Concomitant]

REACTIONS (3)
  - DIZZINESS [None]
  - TINNITUS [None]
  - ABASIA [None]
